FAERS Safety Report 5867870-1 (Version None)
Quarter: 2008Q3

REPORT INFORMATION
  Report Type: 
  Country: None (occurrence: None)
  Receive Date: 20080902
  Receipt Date: 20080826
  Transmission Date: 20090109
  Serious: Yes (Hospitalization)
  Sender: FDA-Public Use
  Company Number: IE-BOEHRINGER INGELHEIM GMBH, GERMANY-2008-BP-13424RO

PATIENT
  Age: 21 Year
  Sex: Male

DRUGS (8)
  1. DIAZEPAM [Suspect]
  2. METHADONE HCL [Suspect]
  3. HEROIN [Suspect]
  4. COCAINE [Suspect]
  5. METHADONE HCL [Concomitant]
     Indication: DRUG WITHDRAWAL MAINTENANCE THERAPY
     Route: 048
  6. RINGER'S [Concomitant]
     Indication: URINE OUTPUT DECREASED
  7. ANTIBIOTICS [Concomitant]
     Route: 042
  8. SODIUM BICARBONATE [Concomitant]

REACTIONS (17)
  - AGITATION [None]
  - BRACHIAL PLEXOPATHY [None]
  - COMPARTMENT SYNDROME [None]
  - DECUBITUS ULCER [None]
  - DRUG ABUSE [None]
  - DRUG SCREEN POSITIVE [None]
  - ELECTROCARDIOGRAM ST SEGMENT ELEVATION [None]
  - ELECTROCARDIOGRAM T WAVE INVERSION [None]
  - HEART INJURY [None]
  - LOSS OF CONSCIOUSNESS [None]
  - MYDRIASIS [None]
  - MYOGLOBIN URINE PRESENT [None]
  - PERONEAL NERVE PALSY [None]
  - RHABDOMYOLYSIS [None]
  - SOMNOLENCE [None]
  - STUPOR [None]
  - TACHYCARDIA [None]
